FAERS Safety Report 14668403 (Version 1)
Quarter: 2018Q1

REPORT INFORMATION
  Report Type: Spontaneous
  Country: US (occurrence: US)
  Receive Date: 20180322
  Receipt Date: 20180322
  Transmission Date: 20180509
  Serious: No
  Sender: FDA-Public Use
  Company Number: US-VERTEX PHARMACEUTICALS-2017-004489

PATIENT
  Sex: Male

DRUGS (1)
  1. ORKAMBI [Suspect]
     Active Substance: IVACAFTOR\LUMACAFTOR
     Indication: CYSTIC FIBROSIS
     Dosage: UNK
     Route: 048
     Dates: start: 20170130, end: 20170217

REACTIONS (4)
  - Chest pain [Unknown]
  - Fatigue [Unknown]
  - Chest discomfort [Unknown]
  - Gastric disorder [Unknown]

NARRATIVE: CASE EVENT DATE: 2017
